FAERS Safety Report 25804870 (Version 1)
Quarter: 2025Q3

REPORT INFORMATION
  Report Type: Spontaneous
  Country: CN (occurrence: CN)
  Receive Date: 20250916
  Receipt Date: 20250916
  Transmission Date: 20251020
  Serious: Yes (Disabling)
  Sender: JOHNSON AND JOHNSON
  Company Number: CN-JNJFOC-20250911207

PATIENT
  Age: 54 Year
  Sex: Male
  Weight: 40 kg

DRUGS (6)
  1. RISPERIDONE [Suspect]
     Active Substance: RISPERIDONE
     Indication: Schizophrenia
     Route: 048
     Dates: start: 20250807, end: 20250908
  2. RISPERIDONE [Suspect]
     Active Substance: RISPERIDONE
     Dosage: QN
     Route: 048
     Dates: start: 20250807
  3. CLOZAPINE [Suspect]
     Active Substance: CLOZAPINE
     Indication: Schizophrenia
     Route: 048
  4. CLOZAPINE [Suspect]
     Active Substance: CLOZAPINE
     Dosage: ORALLY DISINTEGRATING TABLET
     Route: 048
     Dates: start: 20250807, end: 20250908
  5. LORAZEPAM [Suspect]
     Active Substance: LORAZEPAM
     Indication: Poor quality sleep
     Dosage: QN
     Route: 048
     Dates: start: 20250808, end: 20250908
  6. LORAZEPAM [Suspect]
     Active Substance: LORAZEPAM
     Indication: Schizophrenia

REACTIONS (1)
  - Liver injury [Unknown]

NARRATIVE: CASE EVENT DATE: 20250904
